FAERS Safety Report 4615680-5 (Version None)
Quarter: 2005Q1

REPORT INFORMATION
  Report Type: 
  Country: None (occurrence: None)
  Receive Date: 20050317
  Receipt Date: 20050223
  Transmission Date: 20050727
  Serious: Yes (Death, Hospitalization)
  Sender: FDA-Public Use
  Company Number: 2005000425

PATIENT
  Age: 72 Year
  Sex: Male

DRUGS (1)
  1. TARCEVA [Suspect]
     Indication: LUNG NEOPLASM MALIGNANT
     Dosage: 150 MG (QD),ORAL
     Route: 048
     Dates: start: 20050120, end: 20050201

REACTIONS (4)
  - DEEP VEIN THROMBOSIS [None]
  - PNEUMONITIS [None]
  - PULMONARY EMBOLISM [None]
  - RASH [None]
